FAERS Safety Report 7021551-X (Version None)
Quarter: 2010Q3

REPORT INFORMATION
  Report Type: 
  Country: None (occurrence: None)
  Receive Date: 20100928
  Receipt Date: 20100913
  Transmission Date: 20110219
  Serious: Yes (Hospitalization)
  Sender: FDA-Public Use
  Company Number: 2010US003461

PATIENT
  Age: 41 Year
  Sex: Female

DRUGS (1)
  1. VIBATIV [Suspect]
     Indication: STAPHYLOCOCCAL INFECTION
     Dosage: IV NOS
     Route: 042
     Dates: start: 20100812, end: 20100821

REACTIONS (1)
  - POST PROCEDURAL INFECTION [None]
